FAERS Safety Report 6234414-4 (Version None)
Quarter: 2009Q2

REPORT INFORMATION
  Report Type: 
  Country: None (occurrence: None)
  Receive Date: 20090615
  Receipt Date: 20090504
  Transmission Date: 20091009
  Serious: No
  Sender: FDA-Public Use
  Company Number: DSA_33596_2009

PATIENT
  Sex: Male

DRUGS (9)
  1. XENAZINE [Suspect]
     Indication: HUNTINGTON'S CHOREA
     Dosage: (12.5 MG QD)
     Dates: start: 20090408, end: 20090410
  2. ARICEPT [Concomitant]
  3. NAMENDA [Concomitant]
  4. DEPAKOTE [Concomitant]
  5. ZOLOFT [Concomitant]
  6. FLOMAX /0088901/ [Concomitant]
  7. AVIDART [Concomitant]
  8. CRESTOR [Concomitant]
  9. FISH OIL [Concomitant]

REACTIONS (6)
  - ASTHENIA [None]
  - CHILLS [None]
  - MALAISE [None]
  - NASOPHARYNGITIS [None]
  - NAUSEA [None]
  - TREMOR [None]
